FAERS Safety Report 8814792 (Version 2)
Quarter: 2012Q4

REPORT INFORMATION
  Report Type: Spontaneous
  Country: None (occurrence: None)
  Receive Date: 20120926
  Receipt Date: 20121009
  Transmission Date: 20130627
  Serious: Yes (Disabling)
  Sender: FDA-Public Use
  Company Number: AUR-APL-2012-03660

PATIENT
  Age: 32 Year
  Sex: Male

DRUGS (4)
  1. MIRTAZAPINE [Suspect]
     Indication: ANXIETY
     Dosage: 15mg to 30mg,Oral
     Route: 048
  2. MIRTAZAPINE [Suspect]
     Indication: DEPRESSION
     Dosage: 15mg to 30mg,Oral
     Route: 048
  3. MIRTAZAPINE [Suspect]
     Indication: INSOMNIA
     Dosage: 15mg to 30mg,Oral
     Route: 048
  4. DIAZEPAM [Concomitant]

REACTIONS (4)
  - Emotional distress [None]
  - Thinking abnormal [None]
  - Insomnia [None]
  - Suicidal ideation [None]
